FAERS Safety Report 18765549 (Version 1)
Quarter: 2021Q1

REPORT INFORMATION
  Report Type: Spontaneous
  Country: CA (occurrence: CA)
  Receive Date: 20210121
  Receipt Date: 20210121
  Transmission Date: 20210419
  Serious: Yes (Other)
  Sender: FDA-Public Use
  Company Number: CA-SA-2021SA012077

PATIENT
  Age: 59 Year
  Sex: Female
  Weight: 68 kg

DRUGS (25)
  1. HYDROXYCHLOROQUINE [Suspect]
     Active Substance: HYDROXYCHLOROQUINE
  2. ORENCIA [Suspect]
     Active Substance: ABATACEPT
     Indication: RHEUMATOID ARTHRITIS
     Route: 042
  3. RITUXIMAB. [Suspect]
     Active Substance: RITUXIMAB
     Route: 042
  4. DESOXIMETASONE. [Suspect]
     Active Substance: DESOXIMETASONE
     Indication: RHEUMATOID ARTHRITIS
     Route: 048
  5. METHOTREXATE. [Suspect]
     Active Substance: METHOTREXATE
     Dosage: 25 MG, QW
     Route: 058
  6. SIMPONI [Suspect]
     Active Substance: GOLIMUMAB
     Indication: RHEUMATOID ARTHRITIS
     Route: 058
  7. DICLOFENAC [Concomitant]
     Active Substance: DICLOFENAC
     Dosage: 50 MG
  8. CETIRIZINE HYDROCHLORIDE. [Suspect]
     Active Substance: CETIRIZINE HYDROCHLORIDE
     Indication: RHEUMATOID ARTHRITIS
     Dosage: UNK
  9. ENBREL [Suspect]
     Active Substance: ETANERCEPT
     Indication: RHEUMATOID ARTHRITIS
  10. REMICADE [Suspect]
     Active Substance: INFLIXIMAB
     Indication: RHEUMATOID ARTHRITIS
     Route: 042
  11. PLAQUENIL [Suspect]
     Active Substance: HYDROXYCHLOROQUINE SULFATE
     Dosage: 400 MG, QD
  12. ALENDRONATE SODIUM. [Suspect]
     Active Substance: ALENDRONATE SODIUM
     Indication: RHEUMATOID ARTHRITIS
  13. PREDNISONE. [Suspect]
     Active Substance: PREDNISONE
     Indication: RHEUMATOID ARTHRITIS
     Dosage: 40 MG
  14. HUMIRA [Suspect]
     Active Substance: ADALIMUMAB
     Indication: RHEUMATOID ARTHRITIS
     Dosage: 40 MG
     Route: 058
  15. ARAVA [Suspect]
     Active Substance: LEFLUNOMIDE
     Indication: RHEUMATOID ARTHRITIS
  16. METHOTREXATE. [Suspect]
     Active Substance: METHOTREXATE
     Indication: RHEUMATOID ARTHRITIS
     Dosage: 25 MG
     Route: 048
  17. CIMZIA [Suspect]
     Active Substance: CERTOLIZUMAB PEGOL
     Indication: RHEUMATOID ARTHRITIS
     Dosage: 400 MG
     Route: 058
  18. SALAZOPYRIN [Concomitant]
     Active Substance: SULFASALAZINE
  19. FOLIC ACID. [Suspect]
     Active Substance: FOLIC ACID
     Indication: RHEUMATOID ARTHRITIS
     Dosage: 5 MG
  20. SULFASALAZINE. [Suspect]
     Active Substance: SULFASALAZINE
     Indication: RHEUMATOID ARTHRITIS
     Dosage: 1000 MG, BID
     Route: 048
  21. PSEUDOEPHEDRINE HYDROCHLORIDE. [Suspect]
     Active Substance: PSEUDOEPHEDRINE HYDROCHLORIDE
     Indication: RHEUMATOID ARTHRITIS
  22. PHTHALYLSULFATHIAZOLE [Suspect]
     Active Substance: PHTHALYLSULFATHIAZOLE
  23. CORTISONE ACETATE. [Suspect]
     Active Substance: CORTISONE ACETATE
  24. METHOTREXATE. [Suspect]
     Active Substance: METHOTREXATE
     Dosage: 20 MG, QD
     Route: 048
  25. TOCILIZUMAB RECOMBINANT [Suspect]
     Active Substance: TOCILIZUMAB
     Indication: RHEUMATOID ARTHRITIS

REACTIONS (17)
  - Arthralgia [Unknown]
  - Hypersensitivity [Unknown]
  - Rheumatoid arthritis [Unknown]
  - Alopecia [Unknown]
  - Abdominal discomfort [Unknown]
  - Joint swelling [Unknown]
  - Musculoskeletal stiffness [Unknown]
  - Product use issue [Unknown]
  - Contraindicated product administered [Unknown]
  - Drug ineffective [Unknown]
  - Systemic lupus erythematosus [Unknown]
  - Pericarditis [Unknown]
  - Pemphigus [Unknown]
  - Pain [Unknown]
  - Therapeutic product effect decreased [Unknown]
  - Maternal exposure during pregnancy [Unknown]
  - Treatment failure [Unknown]
